FAERS Safety Report 4924150-6 (Version None)
Quarter: 2006Q1

REPORT INFORMATION
  Report Type: 
  Country: None (occurrence: None)
  Receive Date: 20060227
  Receipt Date: 20051122
  Transmission Date: 20060701
  Serious: Yes (Other)
  Sender: FDA-Public Use
  Company Number: US-GLAXOSMITHKLINE-A0583509A

PATIENT
  Age: 36 Year
  Sex: Female
  Weight: 68.2 kg

DRUGS (5)
  1. WELLBUTRIN XL [Suspect]
     Indication: DEPRESSION
     Dosage: 150MG PER DAY
     Route: 048
     Dates: start: 20051101, end: 20051122
  2. LEXAPRO [Concomitant]
  3. ORTHO TRI-CYCLEN [Concomitant]
  4. EXCEDRIN [Concomitant]
  5. MULTI-VITAMIN [Concomitant]

REACTIONS (7)
  - ANAPHYLACTOID REACTION [None]
  - DYSPNOEA [None]
  - EYE SWELLING [None]
  - HYPERSENSITIVITY [None]
  - LACRIMATION INCREASED [None]
  - SWELLING FACE [None]
  - URTICARIA [None]
